FAERS Safety Report 8382399-7 (Version None)
Quarter: 2012Q2

REPORT INFORMATION
  Report Type: 
  Country: None (occurrence: None)
  Receive Date: 20120522
  Receipt Date: 20120223
  Transmission Date: 20120825
  Serious: Yes (Other)
  Sender: FDA-Public Use
  Company Number: 2011-01800

PATIENT
  Age: 75 Year
  Sex: Male

DRUGS (7)
  1. TESTOSTERONE [Concomitant]
  2. LIPITOR [Concomitant]
  3. PERINDOPRIL ERBUMINE [Concomitant]
  4. SODIUM CHLORIDE [Suspect]
     Indication: PRODUCT USED FOR UNKNOWN INDICATION
  5. ATORVASTATIN CALCIUM [Concomitant]
  6. IMMUCYST [Suspect]
     Indication: PRODUCT USED FOR UNKNOWN INDICATION
  7. ASPIRIN [Concomitant]

REACTIONS (10)
  - MONOCYTE COUNT INCREASED [None]
  - LUNG NEOPLASM [None]
  - SILICOSIS [None]
  - SKIN DISCOLOURATION [None]
  - PRODUCT QUALITY ISSUE [None]
  - DERMATITIS [None]
  - PULMONARY SARCOIDOSIS [None]
  - ERYTHEMA NODOSUM [None]
  - LYMPH NODE CALCIFICATION [None]
  - PULMONARY CALCIFICATION [None]
